FAERS Safety Report 25642104 (Version 2)
Quarter: 2025Q3

REPORT INFORMATION
  Report Type: Spontaneous
  Country: JP (occurrence: JP)
  Receive Date: 20250805
  Receipt Date: 20250909
  Transmission Date: 20251020
  Serious: Yes (Death, Other)
  Sender: GLAXOSMITHKLINE
  Company Number: JP-GSKJP-JP2025JPN098994AA

PATIENT
  Age: 79 Year
  Sex: Male

DRUGS (3)
  1. DAPRODUSTAT [Suspect]
     Active Substance: DAPRODUSTAT
     Indication: Nephrogenic anaemia
  2. Fesin [Concomitant]
     Indication: Nephrogenic anaemia
  3. Fesin [Concomitant]
     Indication: Mineral supplementation

REACTIONS (6)
  - Shock haemorrhagic [Fatal]
  - Post procedural inflammation [Unknown]
  - Ulcer [Unknown]
  - Inflammation [Unknown]
  - Product use issue [Unknown]
  - Off label use [Unknown]
